FAERS Safety Report 23135246 (Version 2)
Quarter: 2024Q1

REPORT INFORMATION
  Report Type: Report from Study
  Country: CR (occurrence: CR)
  Receive Date: 20231101
  Receipt Date: 20240108
  Transmission Date: 20240409
  Serious: Yes (Hospitalization, Other)
  Sender: FDA-Public Use
  Company Number: CR-002147023-NVSC2023CR229962

PATIENT

DRUGS (1)
  1. SECUKINUMAB [Suspect]
     Active Substance: SECUKINUMAB
     Indication: Ankylosing spondylitis
     Dosage: 150 MG, QMO
     Route: 058
     Dates: start: 20220914

REACTIONS (15)
  - Spinal pain [Unknown]
  - Gastrointestinal disorder [Unknown]
  - Diarrhoea haemorrhagic [Unknown]
  - Large intestinal haemorrhage [Unknown]
  - Gait disturbance [Unknown]
  - Musculoskeletal stiffness [Unknown]
  - Hyperhidrosis [Unknown]
  - Hot flush [Unknown]
  - Arthralgia [Unknown]
  - Urine odour abnormal [Unknown]
  - Renal disorder [Unknown]
  - Headache [Unknown]
  - Toothache [Unknown]
  - Suspected product quality issue [Unknown]
  - Drug ineffective [Unknown]
